FAERS Safety Report 4336823-7 (Version None)
Quarter: 2004Q2

REPORT INFORMATION
  Report Type: 
  Country: None (occurrence: None)
  Receive Date: 20040408
  Receipt Date: 20040324
  Transmission Date: 20050107
  Serious: Yes (Hospitalization)
  Sender: FDA-Public Use
  Company Number: 192519

PATIENT
  Sex: Female

DRUGS (1)
  1. AVONEX ^BIOGEN^ [Suspect]
     Indication: MULTIPLE SCLEROSIS

REACTIONS (6)
  - DYSPHAGIA [None]
  - GAIT DISTURBANCE [None]
  - MUSCLE CRAMP [None]
  - MUSCLE DISORDER [None]
  - VISUAL ACUITY REDUCED [None]
  - WEIGHT DECREASED [None]
